FAERS Safety Report 7033614-3 (Version None)
Quarter: 2010Q4

REPORT INFORMATION
  Report Type: 
  Country: None (occurrence: None)
  Receive Date: 20101007
  Receipt Date: 20100927
  Transmission Date: 20110411
  Serious: Yes (Other)
  Sender: FDA-Public Use
  Company Number: GXBR2010US01412

PATIENT
  Sex: Female
  Weight: 53.968 kg

DRUGS (4)
  1. AMIODARONE HYDROCHLORIDE TABLETS (NGX) [Suspect]
     Indication: ATRIAL FIBRILLATION
     Dosage: 200 MG, QD
     Route: 048
     Dates: start: 20100201
  2. LEVOTHYROXINE [Concomitant]
     Indication: HYPOTHYROIDISM
     Dosage: UNK
     Route: 048
     Dates: start: 20090101
  3. ASPIRIN [Concomitant]
     Indication: ROUTINE HEALTH MAINTENANCE
     Dosage: 81 MG, UNK
     Route: 048
     Dates: start: 20060101
  4. AVAPRO [Concomitant]
     Indication: HYPERTENSION
     Dosage: 75 MG, QD
     Route: 048
     Dates: start: 20040101

REACTIONS (4)
  - BLOOD PRESSURE INCREASED [None]
  - HEPATIC ENZYME INCREASED [None]
  - TEMPERATURE INTOLERANCE [None]
  - WEIGHT DECREASED [None]
